FAERS Safety Report 24344058 (Version 1)
Quarter: 2024Q3

REPORT INFORMATION
  Report Type: Spontaneous
  Country: US (occurrence: None)
  Receive Date: 20240920
  Receipt Date: 20240920
  Transmission Date: 20241017
  Serious: Yes (Other)
  Sender: Public
  Company Number: None

PATIENT
  Age: 19 Year
  Sex: Male

DRUGS (4)
  1. JIVI [Suspect]
     Active Substance: DAMOCTOCOG ALFA PEGOL
     Indication: Factor VIII deficiency
     Dosage: FREQ: JIVI 1041 UNIT/VIAL, 3 VIALS. INFUSE ONE VIAL OF 3135  UNITS AND ONE VIAL OF 1041 UNITS TO EQ
     Route: 042
     Dates: start: 20231031
  2. BUSPIRONE [Concomitant]
     Active Substance: BUSPIRONE HYDROCHLORIDE
  3. SEROQUEL [Concomitant]
     Active Substance: QUETIAPINE FUMARATE
  4. ZOLOFT [Concomitant]
     Active Substance: SERTRALINE HYDROCHLORIDE

REACTIONS (6)
  - Haemorrhage [None]
  - Head injury [None]
  - Impaired work ability [None]
  - Fall [None]
  - Product knowledge deficit [None]
  - Dental discomfort [None]

NARRATIVE: CASE EVENT DATE: 20240915
